FAERS Safety Report 9325689 (Version 1)
Quarter: 2013Q2

REPORT INFORMATION
  Report Type: Spontaneous
  Country: US (occurrence: None)
  Receive Date: 20130603
  Receipt Date: 20130603
  Transmission Date: 20140414
  Serious: Yes (Other)
  Sender: FDA-Public Use
  Company Number: None

PATIENT
  Age: 16 Year
  Sex: Male
  Weight: 82 kg

DRUGS (2)
  1. ADVATE [Suspect]
     Indication: HAEMOPHILIA
     Dosage: 3288 INTERNATIONAL UNITS EVERY OTHER DAY IV BOLUS
     Route: 040
     Dates: start: 20130430, end: 20130515
  2. ADVATE [Suspect]
     Dosage: 3288 INTERNATIONAL UNITS EVERY OTHER DAY IV BOLUS
     Route: 040
     Dates: start: 20130430, end: 20130515

REACTIONS (1)
  - Haemorrhage [None]
